FAERS Safety Report 8125661-5 (Version None)
Quarter: 2012Q1

REPORT INFORMATION
  Report Type: 
  Country: None (occurrence: None)
  Receive Date: 20120209
  Receipt Date: 20120202
  Transmission Date: 20120608
  Serious: Yes (Hospitalization)
  Sender: FDA-Public Use
  Company Number: US-US-EMD SERONO, INC.-7103298

PATIENT
  Sex: Female
  Weight: 64 kg

DRUGS (4)
  1. REBIF [Suspect]
     Route: 058
     Dates: start: 20120101
  2. IMPLANON [Concomitant]
     Indication: CONTRACEPTION
     Dates: start: 20111115
  3. ALBUTEROL [Concomitant]
     Indication: ASTHMA
  4. REBIF [Suspect]
     Indication: MULTIPLE SCLEROSIS
     Route: 058
     Dates: start: 20111115

REACTIONS (5)
  - MULTIPLE SCLEROSIS RELAPSE [None]
  - STRESS [None]
  - HEADACHE [None]
  - MYALGIA [None]
  - ALOPECIA [None]
